FAERS Safety Report 5913334-6 (Version None)
Quarter: 2008Q4

REPORT INFORMATION
  Report Type: 
  Country: None (occurrence: None)
  Receive Date: 20081009
  Receipt Date: 20080929
  Transmission Date: 20090506
  Serious: Yes (Other)
  Sender: FDA-Public Use
  Company Number: PHHY2008BR12048

PATIENT
  Sex: Female

DRUGS (4)
  1. CODATEN [Suspect]
     Indication: TENDONITIS
     Dosage: 1 DF, Q8H
     Route: 048
     Dates: start: 20080530, end: 20080604
  2. CODATEN [Suspect]
     Indication: CALCIFICATION METASTATIC
  3. MIOSAN [Concomitant]
     Indication: TENDONITIS
     Dosage: UNK
     Route: 048
     Dates: start: 20080530, end: 20080604
  4. MIOSAN [Concomitant]
     Indication: CALCIFICATION METASTATIC

REACTIONS (3)
  - CONSTIPATION [None]
  - HAEMORRHAGE [None]
  - HAEMORRHOIDS [None]
